FAERS Safety Report 14918351 (Version 3)
Quarter: 2018Q3

REPORT INFORMATION
  Report Type: Spontaneous
  Country: MY (occurrence: MY)
  Receive Date: 20180521
  Receipt Date: 20180703
  Transmission Date: 20181010
  Serious: Yes (Hospitalization, Other)
  Sender: FDA-Public Use
  Company Number: PHHY2018MY003925

PATIENT
  Age: 11 Year
  Sex: Male

DRUGS (4)
  1. EXJADE [Suspect]
     Active Substance: DEFERASIROX
     Dosage: 35 MG/KG/DAY
     Route: 065
     Dates: start: 20160717, end: 20180514
  2. EXJADE [Suspect]
     Active Substance: DEFERASIROX
     Indication: THALASSAEMIA
     Dosage: UNK
     Route: 065
     Dates: start: 201211
  3. EXJADE [Suspect]
     Active Substance: DEFERASIROX
     Dosage: 30 MG/KG/DAY
     Route: 065
     Dates: start: 2014, end: 20160717
  4. FOLATE [Concomitant]
     Active Substance: FOLATE SODIUM
     Indication: PRODUCT USED FOR UNKNOWN INDICATION
     Dosage: 5 MG, QD
     Route: 065

REACTIONS (6)
  - Depressed level of consciousness [Recovering/Resolving]
  - Confusional state [Unknown]
  - Urine output increased [Unknown]
  - Fanconi syndrome acquired [Unknown]
  - Lethargy [Unknown]
  - Delirium [Recovering/Resolving]

NARRATIVE: CASE EVENT DATE: 20180513
